FAERS Safety Report 5441539-X (Version None)
Quarter: 2007Q3

REPORT INFORMATION
  Report Type: 
  Country: None (occurrence: None)
  Receive Date: 20070829
  Receipt Date: 20070829
  Transmission Date: 20080115
  Serious: No
  Sender: FDA-Public Use
  Company Number: None

PATIENT
  Sex: Female

DRUGS (1)
  1. OXYCODONE 5MG [Suspect]
     Indication: STERNAL FRACTURE
     Dosage: 5MG Q4-6 PRN PO
     Route: 048
     Dates: start: 20070826, end: 20070827

REACTIONS (3)
  - PRURITUS [None]
  - RASH [None]
  - URTICARIA [None]
